FAERS Safety Report 22235673 (Version 4)
Quarter: 2023Q2

REPORT INFORMATION
  Report Type: Spontaneous
  Country: None (occurrence: CA)
  Receive Date: 20230420
  Receipt Date: 20230623
  Transmission Date: 20230722
  Serious: Yes (Hospitalization)
  Sender: FDA-Public Use
  Company Number: CA-Ascend Therapeutics US, LLC-2140609

PATIENT
  Age: 75 Year
  Sex: Female

DRUGS (35)
  1. ESTROGEL [Suspect]
     Active Substance: ESTRADIOL
     Indication: Menopausal symptoms
     Route: 065
  2. ESTROGEL [Suspect]
     Active Substance: ESTRADIOL
     Route: 065
  3. ACETAMINOPHEN [Suspect]
     Active Substance: ACETAMINOPHEN
     Route: 065
  4. AMOXICILLIN TRIHYDRATE [Suspect]
     Active Substance: AMOXICILLIN
     Route: 065
  5. ATORVASTATIN CALCIUM [Suspect]
     Active Substance: ATORVASTATIN CALCIUM
     Route: 065
  6. CALCIUM CARBONATE [Suspect]
     Active Substance: CALCIUM CARBONATE
     Route: 065
  7. CLONAZEPAM [Suspect]
     Active Substance: CLONAZEPAM
     Route: 065
  8. DICLOFENAC DIETHYLAMINE [Suspect]
     Active Substance: DICLOFENAC DIETHYLAMINE
     Route: 065
  9. IBUPROFEN [Suspect]
     Active Substance: IBUPROFEN
     Route: 065
  10. IPRATROPIUM [Suspect]
     Active Substance: IPRATROPIUM
     Route: 065
  11. LATANOPROST [Suspect]
     Active Substance: LATANOPROST
     Route: 065
  12. NAPROXEN [Suspect]
     Active Substance: NAPROXEN
     Route: 065
  13. PREGABALIN [Suspect]
     Active Substance: PREGABALIN
     Route: 065
  14. BRINZOLAMIDE [Suspect]
     Active Substance: BRINZOLAMIDE
     Route: 065
  15. TELMISARTAN [Suspect]
     Active Substance: TELMISARTAN
     Route: 065
  16. VITAMIN B6 [Suspect]
     Active Substance: PYRIDOXINE HYDROCHLORIDE
     Route: 065
  17. VITAMIN D3 [Suspect]
     Active Substance: CHOLECALCIFEROL
     Route: 065
  18. ZOPICLONE [Suspect]
     Active Substance: ZOPICLONE
     Route: 065
  19. VITAMINS NOS [Suspect]
     Active Substance: VITAMINS
     Route: 065
  20. VITAMINS NOS [Concomitant]
     Active Substance: VITAMINS
     Route: 065
  21. COLECALCIFEROL(COLECALCIFEROL) [Concomitant]
     Route: 065
  22. ESTRADIOL [Suspect]
     Active Substance: ESTRADIOL
     Route: 062
  23. AZOPT [Suspect]
     Active Substance: BRINZOLAMIDE
     Route: 047
  24. LATANOPROST [Suspect]
     Active Substance: LATANOPROST
     Route: 047
  25. BRINZOLAMIDE [Suspect]
     Active Substance: BRINZOLAMIDE
     Route: 065
  26. DIETARY SUPPLEMENT [Suspect]
     Active Substance: DIETARY SUPPLEMENT
     Route: 065
  27. VITAMIN D3 [Suspect]
     Active Substance: CHOLECALCIFEROL
     Route: 065
  28. IPRATROPIUM [Suspect]
     Active Substance: IPRATROPIUM
     Route: 065
  29. BRINZOLAMIDE\TIMOLOL MALEATE [Suspect]
     Active Substance: BRINZOLAMIDE\TIMOLOL MALEATE
     Route: 047
  30. DICLOFENAC SODIUM [Suspect]
     Active Substance: DICLOFENAC SODIUM
     Route: 065
  31. GABAPENTIN [Suspect]
     Active Substance: GABAPENTIN
     Route: 065
  32. PYRIDOXINE HYDROCHLORIDE [Suspect]
     Active Substance: PYRIDOXINE HYDROCHLORIDE
     Route: 065
  33. AZOPT [Suspect]
     Active Substance: BRINZOLAMIDE
     Route: 065
  34. IPRATROPIUM [Suspect]
     Active Substance: IPRATROPIUM
  35. ESTRADIOL [Suspect]
     Active Substance: ESTRADIOL
     Route: 065

REACTIONS (1)
  - Toxic epidermal necrolysis [Recovered/Resolved]
